FAERS Safety Report 18273628 (Version 1)
Quarter: 2020Q3

REPORT INFORMATION
  Report Type: Other
  Country: ES (occurrence: ES)
  Receive Date: 20200916
  Receipt Date: 20200916
  Transmission Date: 20201103
  Serious: Yes (Other)
  Sender: FDA-Public Use
  Company Number: ES-COLLEGIUM PHARMACEUTICAL, INC.-2020CGM00168

PATIENT
  Age: 29 Year
  Sex: Female
  Weight: 103 kg

DRUGS (10)
  1. DIAZEPAN [Concomitant]
     Active Substance: DIAZEPAM
     Dosage: UNK
     Dates: start: 20200702, end: 20200705
  2. SIRDALUD [Concomitant]
     Active Substance: TIZANIDINE
     Dosage: UNK
     Dates: start: 20200806, end: 20200810
  3. NUCYNTA ER [Suspect]
     Active Substance: TAPENTADOL HYDROCHLORIDE
     Indication: LUMBOSACRAL RADICULOPATHY
     Dosage: 200 MG, 2X/DAY (EVERY 12 HOURS)
     Dates: start: 20200806, end: 20200816
  4. TRAMADOL PARACETAMOL CINFA [Concomitant]
     Dosage: UNK
     Dates: start: 20200705, end: 20200806
  5. SIRDALUD [Concomitant]
     Active Substance: TIZANIDINE
     Dosage: UNK
     Dates: start: 20200706, end: 20200710
  6. VIMOVO [Concomitant]
     Active Substance: ESOMEPRAZOLE MAGNESIUM\NAPROXEN
     Dosage: UNK
     Dates: start: 20200723, end: 20200801
  7. ENANTYUM [Concomitant]
     Active Substance: DEXKETOPROFEN TROMETAMOL
     Dosage: UNK
     Dates: start: 20200702, end: 20200723
  8. DIAZEPAN [Concomitant]
     Active Substance: DIAZEPAM
     Dosage: UNK
     Dates: start: 20200515, end: 20200519
  9. FORTECORTIN [Concomitant]
     Active Substance: DEXAMETHASONE
     Dosage: UNK
     Dates: start: 20200713, end: 20200722
  10. NOLOTIL [Concomitant]
     Dosage: UNK
     Dates: start: 20200516, end: 20200814

REACTIONS (4)
  - Amnesia [Recovering/Resolving]
  - Sleep disorder [Recovered/Resolved]
  - Euphoric mood [Recovered/Resolved]
  - Disturbance in attention [Recovering/Resolving]

NARRATIVE: CASE EVENT DATE: 20200806
